FAERS Safety Report 24750607 (Version 1)
Quarter: 2024Q4

REPORT INFORMATION
  Report Type: Report from Study
  Country: TR (occurrence: TR)
  Receive Date: 20241218
  Receipt Date: 20241218
  Transmission Date: 20250115
  Serious: Yes (Death)
  Sender: ABBVIE
  Company Number: TR-ABBVIE-6051957

PATIENT
  Age: 41 Year
  Sex: Male
  Weight: 60 kg

DRUGS (5)
  1. CARBIDOPA\LEVODOPA [Suspect]
     Active Substance: CARBIDOPA\LEVODOPA
     Indication: Parkinson^s disease
     Dosage: MORNING DOSE (ML): 1.50 CONTINUOUS DOSE (ML): 1.50 EXTRA DOSE (ML): 1.00
     Route: 050
     Dates: start: 20241204
  2. CARBIDOPA\LEVODOPA [Suspect]
     Active Substance: CARBIDOPA\LEVODOPA
  3. CIPRALEX [Concomitant]
     Active Substance: ESCITALOPRAM OXALATE
     Indication: Depression
     Dosage: FORM STRENGTH: 20 MILLIGRAM
     Route: 048
     Dates: start: 2020, end: 20241214
  4. DOPADEX SR [Concomitant]
     Indication: Parkinson^s disease
     Dosage: FORM STRENGTH: 50 MILLIGRAM
     Route: 048
     Dates: start: 2022, end: 20241214
  5. KETYA [Concomitant]
     Indication: Parkinson^s disease
     Dosage: FORM STRENGTH: 25 MILLIGRAM
     Route: 048
     Dates: start: 2020, end: 20241214

REACTIONS (1)
  - Completed suicide [Fatal]

NARRATIVE: CASE EVENT DATE: 20241215
